FAERS Safety Report 15579425 (Version 1)
Quarter: 2018Q4

REPORT INFORMATION
  Report Type: Spontaneous
  Country: US (occurrence: US)
  Receive Date: 20181030
  Receipt Date: 20181030
  Transmission Date: 20190205
  Serious: Yes (Disabling)
  Sender: FDA-Public Use
  Company Number: None

PATIENT
  Age: 50 Year
  Sex: Female
  Weight: 69.75 kg

DRUGS (16)
  1. AIMOVIG [Suspect]
     Active Substance: ERENUMAB-AOOE
     Indication: MIGRAINE
     Dosage: ?          QUANTITY:1 DF DOSAGE FORM;?
     Route: 058
  2. PROPRANOLOL [Concomitant]
     Active Substance: PROPRANOLOL HYDROCHLORIDE
  3. TRAMADOL. [Concomitant]
     Active Substance: TRAMADOL
  4. VITAMIN B12 [Concomitant]
     Active Substance: CYANOCOBALAMIN
  5. MULTIVITAMIN [Concomitant]
     Active Substance: VITAMINS
  6. LEXAPRO [Concomitant]
     Active Substance: ESCITALOPRAM OXALATE
  7. ORTHOTICS [Concomitant]
  8. TART CHERRY JUICE CONCENTRATE [Concomitant]
  9. BOOT FOR ANKLE/FOOT [Concomitant]
  10. FIORCET [Concomitant]
  11. VITAMIN D3 [Concomitant]
     Active Substance: CHOLECALCIFEROL
  12. PHYSICAL THERAPY FOR PAIN [Concomitant]
  13. ZOMIG [Concomitant]
     Active Substance: ZOLMITRIPTAN
  14. IBUPROFEN. [Concomitant]
     Active Substance: IBUPROFEN
  15. METHYLCOLBALIMINE [Concomitant]
  16. MAGNESIUM [Concomitant]
     Active Substance: MAGNESIUM

REACTIONS (17)
  - Chest discomfort [None]
  - Arthralgia [None]
  - Lymphadenopathy [None]
  - Pain in extremity [None]
  - Flushing [None]
  - Pruritus [None]
  - Gait disturbance [None]
  - Breast pain [None]
  - Constipation [None]
  - Impaired work ability [None]
  - Dysstasia [None]
  - Rheumatoid arthritis [None]
  - Chest pain [None]
  - Palpitations [None]
  - Fatigue [None]
  - Heart rate increased [None]
  - Autoimmune disorder [None]

NARRATIVE: CASE EVENT DATE: 20181022
